FAERS Safety Report 13194435 (Version 2)
Quarter: 2017Q1

REPORT INFORMATION
  Report Type: Spontaneous
  Country: US (occurrence: US)
  Receive Date: 20170207
  Receipt Date: 20170321
  Transmission Date: 20170428
  Serious: No
  Sender: FDA-Public Use
  Company Number: US-JAZZ-2016-US-024630

PATIENT
  Sex: Female

DRUGS (11)
  1. CYCLOBENZAPRINE [Concomitant]
     Active Substance: CYCLOBENZAPRINE
  2. LEVOTHYROXINE. [Concomitant]
     Active Substance: LEVOTHYROXINE
  3. ZALEPLON. [Concomitant]
     Active Substance: ZALEPLON
  4. NEXIUM [Concomitant]
     Active Substance: ESOMEPRAZOLE MAGNESIUM
  5. XYREM [Suspect]
     Active Substance: SODIUM OXYBATE
     Indication: NARCOLEPSY
     Dosage: 1.5 G, BID
     Route: 048
  6. PROMETHAZINE [Concomitant]
     Active Substance: PROMETHAZINE\PROMETHAZINE HYDROCHLORIDE
  7. BYSTOLIC [Concomitant]
     Active Substance: NEBIVOLOL HYDROCHLORIDE
  8. MODAFINIL. [Concomitant]
     Active Substance: MODAFINIL
  9. HYDROMET                           /00112601/ [Concomitant]
  10. XYREM [Suspect]
     Active Substance: SODIUM OXYBATE
     Indication: CATAPLEXY
     Dosage: 2.25G, BID
     Route: 048
     Dates: start: 20161222
  11. TRAMADOL HCL [Concomitant]
     Active Substance: TRAMADOL HYDROCHLORIDE

REACTIONS (5)
  - Dyspnoea [Not Recovered/Not Resolved]
  - Motion sickness [Not Recovered/Not Resolved]
  - Headache [Unknown]
  - Intentional product use issue [Unknown]
  - Abdominal discomfort [Unknown]
